FAERS Safety Report 8802651 (Version 1)
Quarter: 2012Q4

REPORT INFORMATION
  Report Type: 
  Country: US (occurrence: US)
  Receive Date: 20120921
  Receipt Date: 20120921
  Transmission Date: 20130627
  Serious: No
  Sender: FDA-Public Use
  Company Number: US-PFIZER INC-2012232375

PATIENT
  Age: 51 Year
  Sex: Female
  Weight: 63.49 kg

DRUGS (4)
  1. LIPITOR [Suspect]
     Indication: BLOOD CHOLESTEROL INCREASED
     Dosage: 10 mg, daily
     Dates: start: 2004
  2. ACETYLSALICYLIC ACID [Concomitant]
     Indication: HEADACHE
     Dosage: 325 mg, 2x/day
  3. CAFERGOT [Concomitant]
     Indication: MIGRAINE
     Dosage: 1/100 mg, as needed
     Dates: start: 1975
  4. PREVACID [Concomitant]
     Indication: GASTROOESOPHAGEAL REFLUX DISEASE
     Dosage: 30 mg, daily
     Dates: start: 2003

REACTIONS (1)
  - Blood cholesterol increased [Unknown]
